FAERS Safety Report 16326080 (Version 2)
Quarter: 2019Q3

REPORT INFORMATION
  Report Type: Spontaneous
  Country: CZ (occurrence: CZ)
  Receive Date: 20190517
  Receipt Date: 20190703
  Transmission Date: 20191004
  Serious: Yes (Hospitalization, Other)
  Sender: FDA-Public Use
  Company Number: CZ-BAUSCH-BL-2019-014358

PATIENT
  Sex: Male

DRUGS (9)
  1. TIPIRACIL [Suspect]
     Active Substance: TIPIRACIL
     Indication: RECTAL CANCER
     Dosage: 3-0-3
     Route: 065
     Dates: start: 201804
  2. OXALIPLATIN. [Suspect]
     Active Substance: OXALIPLATIN
     Indication: RECTAL CANCER
     Dosage: PATIENT STOPPED AFTER 8TH CYCLE
     Route: 065
     Dates: start: 201703
  3. CAPECITABINE. [Suspect]
     Active Substance: CAPECITABINE
     Indication: RECTAL CANCER
     Dosage: 3-0-3
     Route: 065
     Dates: start: 201703
  4. FOLINIC ACID [Suspect]
     Active Substance: LEUCOVORIN
     Indication: RECTAL CANCER
     Dosage: QCY
     Route: 065
     Dates: start: 201712
  5. AVASTIN [Suspect]
     Active Substance: BEVACIZUMAB
     Indication: RECTAL CANCER
     Route: 065
     Dates: start: 201703
  6. ZALTRAP [Suspect]
     Active Substance: ZIV-AFLIBERCEPT
     Indication: RECTAL CANCER
     Route: 065
     Dates: start: 201712
  7. FLUOROURACIL. [Suspect]
     Active Substance: FLUOROURACIL
     Indication: RECTAL CANCER
     Dosage: QCY
     Route: 065
     Dates: start: 201712
  8. IRINOTECAN [Suspect]
     Active Substance: IRINOTECAN
     Indication: RECTAL CANCER
     Dosage: QCY
     Route: 065
     Dates: start: 201712
  9. TRIFLURIDINE. [Suspect]
     Active Substance: TRIFLURIDINE
     Indication: RECTAL CANCER
     Dosage: 3-0-3
     Route: 065
     Dates: start: 201804

REACTIONS (10)
  - Hypertension [Unknown]
  - Leukopenia [Unknown]
  - Disease progression [Unknown]
  - Skin toxicity [Unknown]
  - Neutropenia [Unknown]
  - Gastrointestinal toxicity [Unknown]
  - Peritonsillar abscess [Recovered/Resolved]
  - Palmar-plantar erythrodysaesthesia syndrome [Unknown]
  - Condition aggravated [Unknown]
  - Diarrhoea [Unknown]

NARRATIVE: CASE EVENT DATE: 2017
